FAERS Safety Report 18845394 (Version 2)
Quarter: 2021Q1

REPORT INFORMATION
  Report Type: Spontaneous
  Country: US (occurrence: US)
  Receive Date: 20210204
  Receipt Date: 20210312
  Transmission Date: 20210419
  Serious: Yes (Hospitalization)
  Sender: FDA-Public Use
  Company Number: US-MYLANLABS-2021M1007206

PATIENT
  Age: 11 Year
  Sex: Male

DRUGS (16)
  1. GLUCOSE [Suspect]
     Active Substance: DEXTROSE
     Dosage: 8 MILLIGRAM, QMINUTE
     Route: 042
  2. INSULIN GLARGINE [Suspect]
     Active Substance: INSULIN GLARGINE
     Indication: METABOLIC SYNDROME
     Dosage: CONTINUOUS INFUSION
  3. SODIUM CHLORIDE. [Suspect]
     Active Substance: SODIUM CHLORIDE
     Indication: MAPLE SYRUP DISEASE
  4. ISOLEUCINE [Suspect]
     Active Substance: ISOLEUCINE
     Indication: METABOLIC SYNDROME
     Dosage: 240?450 MG/KG
     Route: 065
  5. PARENTERAL (CALCIUM CHLORIDE\POTASSIUM CHLORIDE\SODIUM ACETATE\SODIUM CHLORIDE) [Suspect]
     Active Substance: CALCIUM CHLORIDE\POTASSIUM CHLORIDE\SODIUM ACETATE\SODIUM CHLORIDE
     Indication: METABOLIC SYNDROME
     Route: 051
  6. INTRALIPID                         /01648802/ [Suspect]
     Active Substance: SOYBEAN OIL
     Indication: METABOLIC SYNDROME
     Route: 042
  7. DEXAMETHASONE. [Concomitant]
     Active Substance: DEXAMETHASONE
     Indication: PRODUCT USED FOR UNKNOWN INDICATION
     Dosage: RECEIVED 3 DOSES
     Route: 065
  8. VALINE [Suspect]
     Active Substance: VALINE
     Indication: METABOLIC SYNDROME
     Dosage: 325?500 MG/KG
     Route: 065
  9. GLUCOSE [Suspect]
     Active Substance: DEXTROSE
     Indication: MAPLE SYRUP DISEASE
     Dosage: MAINTAINED AT }6 MG/KG/MINUTE
     Route: 042
  10. INTRALIPID                         /01648802/ [Suspect]
     Active Substance: SOYBEAN OIL
     Indication: MAPLE SYRUP DISEASE
  11. SODIUM CHLORIDE. [Suspect]
     Active Substance: SODIUM CHLORIDE
     Indication: METABOLIC SYNDROME
     Route: 042
  12. GLUCOSE [Suspect]
     Active Substance: DEXTROSE
     Indication: METABOLIC SYNDROME
     Dosage: INITIAL DOSAGE NOT STATED
     Route: 042
  13. INSULIN GLARGINE [Suspect]
     Active Substance: INSULIN GLARGINE
     Indication: MAPLE SYRUP DISEASE
  14. VALINE [Suspect]
     Active Substance: VALINE
     Indication: MAPLE SYRUP DISEASE
  15. ISOLEUCINE [Suspect]
     Active Substance: ISOLEUCINE
     Indication: MAPLE SYRUP DISEASE
  16. PARENTERAL (CALCIUM CHLORIDE\POTASSIUM CHLORIDE\SODIUM ACETATE\SODIUM CHLORIDE) [Suspect]
     Active Substance: CALCIUM CHLORIDE\POTASSIUM CHLORIDE\SODIUM ACETATE\SODIUM CHLORIDE
     Indication: MAPLE SYRUP DISEASE

REACTIONS (1)
  - Drug ineffective [Unknown]
